FAERS Safety Report 9194978 (Version 1)
Quarter: 2013Q1

REPORT INFORMATION
  Report Type: Spontaneous
  Country: None (occurrence: US)
  Receive Date: 20130328
  Receipt Date: 20130328
  Transmission Date: 20140127
  Serious: No
  Sender: FDA-Public Use
  Company Number: US-ALLERGAN-1212804US

PATIENT
  Age: 27 Year
  Sex: Female

DRUGS (1)
  1. LATISSE 0.03% [Suspect]
     Indication: GROWTH OF EYELASHES
     Dosage: 2 GTT, QHS
     Route: 061
     Dates: start: 20120912, end: 201209

REACTIONS (3)
  - Eye disorder [Recovered/Resolved]
  - Eye disorder [Recovered/Resolved]
  - Blepharitis [Recovered/Resolved]
